FAERS Safety Report 9900315 (Version 1)
Quarter: 2014Q1

REPORT INFORMATION
  Report Type: Spontaneous
  Country: US (occurrence: US)
  Receive Date: 20140216
  Receipt Date: 20140216
  Transmission Date: 20141002
  Serious: No
  Sender: FDA-Public Use
  Company Number: US-009507513-1402USA006186

PATIENT
  Sex: 0

DRUGS (1)
  1. INTRONA [Suspect]
     Indication: HEPATITIS C

REACTIONS (1)
  - Drug intolerance [Unknown]
